FAERS Safety Report 21033559 (Version 1)
Quarter: 2022Q3

REPORT INFORMATION
  Report Type: Spontaneous
  Country: PL (occurrence: PL)
  Receive Date: 20220701
  Receipt Date: 20220701
  Transmission Date: 20221027
  Serious: Yes (Other)
  Sender: FDA-Public Use
  Company Number: PL-NOVARTISPH-NVSC2022PL147156

PATIENT
  Age: 50 Year
  Sex: Male

DRUGS (3)
  1. METHOTREXATE [Suspect]
     Active Substance: METHOTREXATE
     Indication: Ankylosing spondylitis
     Dosage: 10 MG, QW
     Route: 058
     Dates: start: 2007, end: 2013
  2. INFLIXIMAB [Suspect]
     Active Substance: INFLIXIMAB
     Indication: Ankylosing spondylitis
     Dosage: 5 MG/KG
     Route: 065
     Dates: start: 2007, end: 2013
  3. CYCLOSPORINE [Concomitant]
     Active Substance: CYCLOSPORINE
     Indication: Product used for unknown indication
     Dosage: UNK,
     Route: 065

REACTIONS (9)
  - Liver injury [Unknown]
  - Ankylosing spondylitis [Unknown]
  - Dactylitis [Unknown]
  - Joint swelling [Unknown]
  - Pain [Unknown]
  - Sacroiliitis [Unknown]
  - Drug intolerance [Unknown]
  - Lung disorder [Unknown]
  - Product use in unapproved indication [Unknown]
